FAERS Safety Report 8439999-5 (Version None)
Quarter: 2012Q2

REPORT INFORMATION
  Report Type: 
  Country: None (occurrence: None)
  Receive Date: 20120615
  Receipt Date: 20120608
  Transmission Date: 20120825
  Serious: Yes (Other)
  Sender: FDA-Public Use
  Company Number: CA-PFIZER INC-2012106027

PATIENT
  Age: 58 Year
  Sex: Male
  Weight: 81.633 kg

DRUGS (8)
  1. ZOPICLONE [Concomitant]
     Indication: SLEEP DISORDER
     Dosage: 7.5 MG, EVERY NIGHT
     Dates: start: 20040101
  2. PANTOPRAZOLE [Concomitant]
     Indication: PROPHYLAXIS
     Dosage: 40 MG, 1X/DAY
     Dates: start: 20040101
  3. EFFEXOR [Suspect]
     Indication: ANXIETY
  4. EFFEXOR [Suspect]
     Indication: DEPRESSION
     Dosage: 150 MG, 1X/DAY
     Dates: start: 20040101
  5. VENLAFAXINE HCL [Suspect]
     Indication: ANXIETY
  6. LORAZEPAM [Concomitant]
     Indication: FEELING OF RELAXATION
     Dosage: 1 MG, EVERY NIGHT
     Dates: start: 20040101
  7. VENLAFAXINE HCL [Suspect]
     Indication: DEPRESSION
     Dosage: 150 MG, 1X/DAY
  8. CYCLOBENZAPRINE [Concomitant]
     Indication: BACK INJURY
     Dosage: 10 MG, 1X/DAY

REACTIONS (5)
  - FLAT AFFECT [None]
  - LIBIDO DECREASED [None]
  - ERECTILE DYSFUNCTION [None]
  - POVERTY [None]
  - BACK INJURY [None]
